FAERS Safety Report 25167573 (Version 2)
Quarter: 2025Q3

REPORT INFORMATION
  Report Type: Spontaneous
  Country: JP (occurrence: JP)
  Receive Date: 20250407
  Receipt Date: 20250807
  Transmission Date: 20251020
  Serious: Yes (Other)
  Sender: MERCK SHARP & DOHME LLC
  Company Number: JP-MSD-M2024-25664

PATIENT
  Age: 75 Year
  Sex: Male

DRUGS (4)
  1. KEYTRUDA [Suspect]
     Active Substance: PEMBROLIZUMAB
     Indication: Oesophageal squamous cell carcinoma stage IV
     Dosage: DOSE DESCRIPTION : 200 MILLIGRAM, Q3W?DAILY DOSE : 9.4 MILLIGRAM?REGIMEN DOSE : 200  MILLIGRAM
     Route: 041
     Dates: start: 20240603
  2. CISPLATIN [Suspect]
     Active Substance: CISPLATIN
     Indication: Oesophageal squamous cell carcinoma stage IV
     Dosage: DOSE DESCRIPTION : 80 MILLIGRAM/SQ. METER, Q3W?DAILY DOSE : 3.76 MILLIGRAM/SQ. METER?REGIMEN DOSE...
     Route: 041
     Dates: start: 20240603, end: 202406
  3. CISPLATIN [Suspect]
     Active Substance: CISPLATIN
     Indication: Oesophageal squamous cell carcinoma stage IV
     Dosage: DOSE DESCRIPTION : 60 MILLIGRAM/SQ. METER, Q3W?DAILY DOSE : 2.82 MILLIGRAM/SQ. METER?REGIMEN DOSE...
     Route: 041
     Dates: start: 202406
  4. FLUOROURACIL [Suspect]
     Active Substance: FLUOROURACIL
     Indication: Oesophageal squamous cell carcinoma stage IV
     Dosage: DOSE DESCRIPTION : 800 MILLIGRAM/SQ. METER, QD (5 DAYS IN A ROW)?DAILY DOSE : 800 MILLIGRAM/SQ. M...
     Route: 041
     Dates: start: 20240603

REACTIONS (2)
  - Renal impairment [Recovered/Resolved]
  - Therapy partial responder [Unknown]

NARRATIVE: CASE EVENT DATE: 20240624
